FAERS Safety Report 25786736 (Version 1)
Quarter: 2025Q3

REPORT INFORMATION
  Report Type: Spontaneous
  Country: US (occurrence: None)
  Receive Date: 20250909
  Receipt Date: 20250909
  Transmission Date: 20251020
  Serious: Yes (Hospitalization)
  Sender: FDA-CTU
  Company Number: None

PATIENT
  Age: 76 Year
  Sex: Male
  Weight: 95.3 kg

DRUGS (6)
  1. ENASIDENIB [Suspect]
     Active Substance: ENASIDENIB
     Indication: Acute myeloid leukaemia
     Dosage: FREQUENCY : DAILY;?
     Route: 048
     Dates: start: 20250729
  2. ROSUVASTATIN [Suspect]
     Active Substance: ROSUVASTATIN
     Indication: Hyperlipidaemia
     Dosage: FREQUENCY : DAILY;?
     Route: 048
     Dates: start: 20241206
  3. CEFTRIAXONE [Concomitant]
     Active Substance: CEFTRIAXONE
  4. ACYCLOVIR [Concomitant]
     Active Substance: ACYCLOVIR
  5. FLUCONAZOLE [Concomitant]
     Active Substance: FLUCONAZOLE
  6. LEVOFLOXACIN [Concomitant]
     Active Substance: LEVOFLOXACIN

REACTIONS (7)
  - Acute kidney injury [None]
  - Pancytopenia [None]
  - Rhabdomyolysis [None]
  - Tumour lysis syndrome [None]
  - Hyperuricaemia [None]
  - Dialysis [None]
  - White blood cell count increased [None]

NARRATIVE: CASE EVENT DATE: 20250909
